FAERS Safety Report 10062442 (Version 1)
Quarter: 2014Q2

REPORT INFORMATION
  Report Type: Not Available
  Country: BE (occurrence: BE)
  Receive Date: 20140407
  Receipt Date: 20140407
  Transmission Date: 20141212
  Serious: Yes (Hospitalization)
  Sender: FDA-Public Use
  Company Number: BE-BEH-2014041538

PATIENT
  Age: 62 Year
  Sex: Female
  Weight: 51 kg

DRUGS (2)
  1. SANDOGLOBULIN [Suspect]
     Indication: MULTIFOCAL MOTOR NEUROPATHY
     Dosage: 40 G (FREQUENCY: 1X/6 WEEKS) (6 G 200 ML)
     Route: 042
     Dates: start: 20140220, end: 20140220
  2. SANDOGLOBULIN [Suspect]
     Indication: MULTIFOCAL MOTOR NEUROPATHY
     Dosage: 40 G (FREQUENCY: 1X/6 WEEKS) (6 G 200 ML)
     Route: 042
     Dates: start: 20140220, end: 20140220

REACTIONS (3)
  - Angioedema [Recovered/Resolved]
  - Eyelid oedema [Recovered/Resolved]
  - Nasal obstruction [Recovered/Resolved]
